FAERS Safety Report 21597271 (Version 1)
Quarter: 2022Q4

REPORT INFORMATION
  Report Type: Report from Study
  Country: US (occurrence: US)
  Receive Date: 20221115
  Receipt Date: 20221115
  Transmission Date: 20230113
  Serious: No
  Sender: FDA-Public Use
  Company Number: US-ABBVIE-22K-163-4477379-00

PATIENT
  Age: 77 Year
  Sex: Female

DRUGS (5)
  1. HUMIRA [Suspect]
     Active Substance: ADALIMUMAB
     Indication: Rheumatoid arthritis
     Dosage: CITRATE FREE
     Route: 058
  2. HUMIRA [Suspect]
     Active Substance: ADALIMUMAB
     Dosage: CITRATE FREE
     Route: 058
  3. Moderna [Concomitant]
     Indication: COVID-19 immunisation
     Dosage: 1ST DOSE, ONE IN ONCE
     Route: 030
     Dates: start: 20210106, end: 20210106
  4. Moderna [Concomitant]
     Indication: COVID-19 immunisation
     Dosage: 2ND DOSE, ONE IN ONCE
     Route: 030
     Dates: start: 20210203, end: 20210203
  5. Moderna [Concomitant]
     Indication: COVID-19 immunisation
     Dosage: 3RD DOSE, ONE IN ONCE
     Route: 030
     Dates: start: 20220115, end: 20220115

REACTIONS (8)
  - Purpura [Not Recovered/Not Resolved]
  - Dysphonia [Not Recovered/Not Resolved]
  - Restless legs syndrome [Recovered/Resolved]
  - Sinus congestion [Recovered/Resolved]
  - Sinus congestion [Recovered/Resolved]
  - COVID-19 [Recovering/Resolving]
  - Infection [Unknown]
  - Device issue [Unknown]

NARRATIVE: CASE EVENT DATE: 20220501
